FAERS Safety Report 9412485 (Version 1)
Quarter: 2013Q3

REPORT INFORMATION
  Report Type: Spontaneous
  Country: IT (occurrence: IT)
  Receive Date: 20130722
  Receipt Date: 20130722
  Transmission Date: 20140515
  Serious: Yes (Hospitalization)
  Sender: FDA-Public Use
  Company Number: IT-TEVA-418208ISR

PATIENT
  Age: 19 Year
  Sex: Male

DRUGS (3)
  1. CLARITROMICINA TEVA 500MG [Suspect]
     Indication: HELICOBACTER INFECTION
     Dosage: 1000 MILLIGRAM DAILY;
     Route: 048
     Dates: start: 20130627, end: 20130627
  2. OMEPRAZOLO TEVA 20MG [Suspect]
     Indication: HELICOBACTER INFECTION
     Dosage: 20 MILLIGRAM DAILY; GASTRO-RESISTANT HARD CAPSULES
     Route: 048
     Dates: start: 20130627, end: 20130627
  3. AMOXICILLINA RATIOPHARM 1GR [Suspect]
     Indication: HELICOBACTER INFECTION
     Dosage: 2 GRAM DAILY;
     Route: 048
     Dates: start: 20130627, end: 20130627

REACTIONS (3)
  - Generalised erythema [Recovered/Resolved]
  - Stomatitis [Recovered/Resolved]
  - Macroglossia [Recovered/Resolved]
